FAERS Safety Report 5193705-9 (Version None)
Quarter: 2006Q4

REPORT INFORMATION
  Report Type: 
  Country: None (occurrence: None)
  Receive Date: 20061228
  Receipt Date: 20061225
  Transmission Date: 20070319
  Serious: Yes (Death)
  Sender: FDA-Public Use
  Company Number: PHBS2006JP19860

PATIENT
  Age: 55 Year
  Sex: Female

DRUGS (3)
  1. VOLTAREN [Suspect]
     Dosage: 25 MG/DAY
     Route: 048
     Dates: start: 20020301, end: 20020601
  2. VOLTAREN [Suspect]
     Dosage: 25 MG/DAY
     Route: 054
     Dates: start: 20020301, end: 20020601
  3. VOLTAREN [Suspect]
     Dosage: 50 MG/DAY
     Route: 054
     Dates: start: 20020601, end: 20020601

REACTIONS (4)
  - DISSEMINATED INTRAVASCULAR COAGULATION [None]
  - LEUKOPENIA [None]
  - MULTI-ORGAN FAILURE [None]
  - SEPSIS [None]
